FAERS Safety Report 11490859 (Version 2)
Quarter: 2015Q3

REPORT INFORMATION
  Report Type: Spontaneous
  Country: US (occurrence: US)
  Receive Date: 20150910
  Receipt Date: 20150921
  Transmission Date: 20151125
  Serious: Yes (Death, Other)
  Sender: FDA-Public Use
  Company Number: US-PFIZER INC-2015297187

PATIENT
  Weight: .69 kg

DRUGS (1)
  1. IBUPROFEN. [Suspect]
     Active Substance: IBUPROFEN
     Indication: PATENT DUCTUS ARTERIOSUS REPAIR
     Dosage: 3 DOSES GIVEN 24 HOURS APART

REACTIONS (1)
  - Pulmonary hypertension [Fatal]
